FAERS Safety Report 23062847 (Version 1)
Quarter: 2023Q4

REPORT INFORMATION
  Report Type: Spontaneous
  Country: US (occurrence: US)
  Receive Date: 20231013
  Receipt Date: 20231013
  Transmission Date: 20240110
  Serious: Yes (Life-Threatening, Hospitalization, Other)
  Sender: FDA-Public Use
  Company Number: US-MLMSERVICE-20230925-4563978-1

PATIENT
  Age: 5 Decade
  Sex: Male

DRUGS (4)
  1. PREDNISONE [Suspect]
     Active Substance: PREDNISONE
     Indication: Uveitis
     Dosage: 40 MILLIGRAM, QD
     Route: 048
  2. PREDNISONE [Suspect]
     Active Substance: PREDNISONE
     Dosage: 60 MILLIGRAM, QD
     Route: 048
  3. PREDNISOLONE [Suspect]
     Active Substance: PREDNISOLONE
     Indication: Uveitis
     Dosage: UNKNOWN
     Route: 065
  4. EMTRICITABINE, TENOFOVIR ALAFENAMIDE, BICTEGRAVIR [Concomitant]
     Indication: HIV infection
     Dosage: UNKNOWN
     Route: 065

REACTIONS (5)
  - Strongyloidiasis [Recovered/Resolved]
  - Bacteraemia [Recovered/Resolved]
  - Disseminated strongyloidiasis [Recovered/Resolved]
  - Meningitis Escherichia [Recovered/Resolved]
  - Urinary incontinence [Recovered/Resolved]
